FAERS Safety Report 20091002 (Version 4)
Quarter: 2021Q4

REPORT INFORMATION
  Report Type: Report from Study
  Country: US (occurrence: US)
  Receive Date: 20211119
  Receipt Date: 20211217
  Transmission Date: 20220303
  Serious: No
  Sender: FDA-Public Use
  Company Number: US-NOVARTISTESTPH-NVSC2021US265243

PATIENT
  Sex: Female
  Weight: 99.773 kg

DRUGS (6)
  1. TREPROSTINIL [Suspect]
     Active Substance: TREPROSTINIL
     Indication: Pulmonary arterial hypertension
     Dosage: UNK UNK, CONT(72 NG/KG/MIN)
     Route: 042
     Dates: start: 20200415
  2. TREPROSTINIL [Suspect]
     Active Substance: TREPROSTINIL
     Dosage: UNK UNK, CONT(76 NG/KG/MIN)
     Route: 042
  3. TREPROSTINIL [Suspect]
     Active Substance: TREPROSTINIL
     Dosage: UNK
     Route: 065
  4. OPSUMIT [Concomitant]
     Active Substance: MACITENTAN
     Indication: Product used for unknown indication
     Dosage: UNK
     Route: 065
  5. WARFARIN [Concomitant]
     Active Substance: WARFARIN
     Indication: Product used for unknown indication
     Dosage: UNK
     Route: 065
  6. ORENITRAM [Concomitant]
     Active Substance: TREPROSTINIL
     Indication: Product used for unknown indication
     Dosage: UNK
     Route: 065

REACTIONS (11)
  - Device infusion issue [Unknown]
  - Rhinorrhoea [Unknown]
  - Cough [Unknown]
  - Dysphonia [Unknown]
  - Glossitis [Unknown]
  - Throat irritation [Unknown]
  - Diarrhoea [Not Recovered/Not Resolved]
  - Flushing [Unknown]
  - Pain in extremity [Unknown]
  - Nasal congestion [Unknown]
  - Nasopharyngitis [Unknown]
